FAERS Safety Report 17588006 (Version 2)
Quarter: 2020Q3

REPORT INFORMATION
  Report Type: Spontaneous
  Country: US (occurrence: US)
  Receive Date: 20200327
  Receipt Date: 20200701
  Transmission Date: 20201102
  Serious: Yes (Hospitalization, Other)
  Sender: FDA-Public Use
  Company Number: US-MTPC-MTDA2020-0047921

PATIENT
  Age: 67 Year
  Sex: Male

DRUGS (2)
  1. RADICAVA [Suspect]
     Active Substance: EDARAVONE
     Dosage: 60 MILLIGRAM, QD 10 DAYS OUT OF 14?DAY PERIODS FOLLOWED BY 14?DAY DRUG?FREE PERIODS
     Route: 042
  2. RADICAVA [Suspect]
     Active Substance: EDARAVONE
     Indication: AMYOTROPHIC LATERAL SCLEROSIS
     Dosage: 60 MILLIGRAM, QD 14 DAYS FOLLOWED BY A 14?DAY DRUG?FREE PERIOD
     Route: 042
     Dates: start: 20200318

REACTIONS (9)
  - Disorientation [Unknown]
  - Unresponsive to stimuli [Recovered/Resolved]
  - Oxygen saturation decreased [Unknown]
  - Feeling abnormal [Unknown]
  - Pleural effusion [Recovered/Resolved]
  - Fatigue [Not Recovered/Not Resolved]
  - Confusional state [Unknown]
  - Therapeutic response unexpected [Unknown]
  - Tachycardia [Unknown]

NARRATIVE: CASE EVENT DATE: 20200318
